FAERS Safety Report 9776359 (Version 1)
Quarter: 2013Q4

REPORT INFORMATION
  Report Type: Report from Study
  Country: US (occurrence: US)
  Receive Date: 20131220
  Receipt Date: 20131220
  Transmission Date: 20140711
  Serious: Yes (Other)
  Sender: FDA-Public Use
  Company Number: US-US-EMD SERONO, INC.-7257943

PATIENT
  Sex: Female

DRUGS (2)
  1. REBIF [Suspect]
     Indication: MULTIPLE SCLEROSIS
     Route: 058
     Dates: start: 20040526
  2. ALEVE                              /00256202/ [Concomitant]
     Indication: PREMEDICATION

REACTIONS (7)
  - Type 2 diabetes mellitus [Recovering/Resolving]
  - Proteinuria [Recovering/Resolving]
  - Psoriasis [Not Recovered/Not Resolved]
  - JC virus test positive [Not Recovered/Not Resolved]
  - Anxiety [Recovering/Resolving]
  - Injection site dryness [Not Recovered/Not Resolved]
  - Injection site erythema [Not Recovered/Not Resolved]
